FAERS Safety Report 4842023-4 (Version None)
Quarter: 2005Q4

REPORT INFORMATION
  Report Type: 
  Country: None (occurrence: None)
  Receive Date: 20051130
  Receipt Date: 20040301
  Transmission Date: 20060501
  Serious: Yes (Other)
  Sender: FDA-Public Use
  Company Number: 2004UW03708

PATIENT
  Age: 75 Year
  Sex: Female
  Weight: 63.6 kg

DRUGS (4)
  1. FASLODEX [Suspect]
     Indication: BREAST CANCER
     Dosage: 250MG/5ML
     Route: 030
     Dates: start: 20020101
  2. ACTONEL [Concomitant]
     Indication: OSTEOPOROSIS
  3. PHOSPHORUS [Concomitant]
  4. NATURAL THYROID SUPPLEMENT [Concomitant]

REACTIONS (5)
  - BALANCE DISORDER [None]
  - CONSTIPATION [None]
  - DEAFNESS [None]
  - DEAFNESS UNILATERAL [None]
  - VISUAL ACUITY REDUCED [None]
